FAERS Safety Report 21147735 (Version 1)
Quarter: 2022Q3

REPORT INFORMATION
  Report Type: Spontaneous
  Country: JP (occurrence: JP)
  Receive Date: 20220729
  Receipt Date: 20220729
  Transmission Date: 20221027
  Serious: Yes (Hospitalization, Other)
  Sender: FDA-Public Use
  Company Number: JP-TAKEDA-2022TUS051135

PATIENT
  Age: 18 Year
  Sex: Male
  Weight: 51 kg

DRUGS (12)
  1. LIALDA [Suspect]
     Active Substance: MESALAMINE
     Indication: Colitis ulcerative
     Dosage: 4000 MILLIGRAM, QD
     Route: 048
  2. LIALDA [Suspect]
     Active Substance: MESALAMINE
     Dosage: 4800 MILLIGRAM, QD
     Route: 048
     Dates: end: 201908
  3. PREDNISOLONE [Concomitant]
     Active Substance: PREDNISOLONE
     Indication: Colitis ulcerative
     Dosage: UNK
     Route: 048
  4. PREDNISOLONE [Concomitant]
     Active Substance: PREDNISOLONE
     Dosage: 30 MILLIGRAM, QD
     Route: 048
     Dates: start: 202006
  5. PREDNISOLONE [Concomitant]
     Active Substance: PREDNISOLONE
     Dosage: 25 MILLIGRAM, QD
     Route: 048
  6. PREDNISOLONE [Concomitant]
     Active Substance: PREDNISOLONE
     Dosage: 20 MILLIGRAM, QD
     Route: 048
  7. PREDNISOLONE [Concomitant]
     Active Substance: PREDNISOLONE
     Dosage: 15 MILLIGRAM, QD
     Route: 048
  8. PREDNISOLONE [Concomitant]
     Active Substance: PREDNISOLONE
     Dosage: 25 MILLIGRAM, QD
     Route: 048
  9. PREDNISOLONE [Concomitant]
     Active Substance: PREDNISOLONE
     Dosage: 20 MILLIGRAM, QD
     Route: 048
  10. PREDNISOLONE [Concomitant]
     Active Substance: PREDNISOLONE
     Dosage: 15 MILLIGRAM, QD
     Route: 048
  11. PREDNISOLONE [Concomitant]
     Active Substance: PREDNISOLONE
     Dosage: 10 MILLIGRAM, QD
     Route: 048
  12. AZATHIOPRINE [Concomitant]
     Active Substance: AZATHIOPRINE
     Indication: Colitis ulcerative
     Dosage: UNK
     Route: 065

REACTIONS (3)
  - Colitis ulcerative [Recovered/Resolved]
  - Cytomegalovirus infection reactivation [Recovering/Resolving]
  - Off label use [Unknown]

NARRATIVE: CASE EVENT DATE: 20200601
